FAERS Safety Report 15417391 (Version 13)
Quarter: 2022Q3

REPORT INFORMATION
  Report Type: Spontaneous
  Country: DE (occurrence: DE)
  Receive Date: 20180924
  Receipt Date: 20220920
  Transmission Date: 20221026
  Serious: Yes (Death, Hospitalization, Other)
  Sender: FDA-Public Use
  Company Number: DE-ACCORD-066484

PATIENT
  Sex: Male

DRUGS (42)
  1. CASPOFUNGIN [Suspect]
     Active Substance: CASPOFUNGIN
     Indication: Antifungal treatment
     Dosage: 280 MILLIGRAM, QD (70 MG, QD, (LOADING DOSE)
     Route: 042
     Dates: start: 201409, end: 201409
  2. CASPOFUNGIN [Suspect]
     Active Substance: CASPOFUNGIN
     Dosage: 50 MILLIGRAM, QID (200 MILLIGRAM, QD)
     Route: 042
     Dates: start: 201409
  3. CASPOFUNGIN [Suspect]
     Active Substance: CASPOFUNGIN
     Dosage: 200 MG EVERYDAY
     Route: 042
     Dates: start: 201409
  4. CYTARABINE [Suspect]
     Active Substance: CYTARABINE
     Indication: Acute myeloid leukaemia
     Dosage: 100 MG/M2/DAY, DAY 1 TO 7
     Route: 042
     Dates: start: 201405
  5. CYTARABINE [Suspect]
     Active Substance: CYTARABINE
     Dosage: 2000 MILLIGRAM/SQ. METER, QD
     Route: 042
     Dates: start: 201408
  6. CYTARABINE [Suspect]
     Active Substance: CYTARABINE
     Dosage: 2000 MILLIGRAM/SQ. METER, QD(2000 MG/M2/DAY B.I.D., DAYS 1 AND 5  )
     Route: 042
     Dates: start: 201408
  7. CYTARABINE [Suspect]
     Active Substance: CYTARABINE
     Dosage: 2000 MG/M2/DAY B.I.D., DAYS 1 AND 5
     Route: 042
     Dates: start: 201408
  8. CYTARABINE [Suspect]
     Active Substance: CYTARABINE
     Dosage: 2,000 MG/M2/DAY I.V. B.I.D., DAYS 1 AND 5)
     Route: 042
  9. CYTARABINE [Suspect]
     Active Substance: CYTARABINE
     Dosage: 100 MG/M2/DAY, DAY 1 TO 7
     Route: 042
  10. FLUDARABINE [Suspect]
     Active Substance: FLUDARABINE PHOSPHATE
     Indication: Acute myeloid leukaemia
     Dosage: 30 MG/M2/DAY, DAYS -6 TO -2
     Route: 065
     Dates: start: 201409
  11. MITOXANTRONE [Suspect]
     Active Substance: MITOXANTRONE HYDROCHLORIDE
     Indication: Acute myeloid leukaemia
     Dosage: 30 MILLIGRAM/SQ. METER, QD, DAYS -1 AND -5
     Route: 042
     Dates: start: 201408
  12. MITOXANTRONE [Suspect]
     Active Substance: MITOXANTRONE HYDROCHLORIDE
     Dosage: 30 MG/M2/DAY I.V. DAYS 1 AND 5
     Route: 042
  13. VORICONAZOLE [Suspect]
     Active Substance: VORICONAZOLE
     Indication: Antifungal treatment
     Dosage: 6 MILLIGRAM/KILOGRAM, BID(LOADING DOSE, 12MG/KG EVERY DAY)
     Route: 042
     Dates: start: 201409, end: 201409
  14. VORICONAZOLE [Suspect]
     Active Substance: VORICONAZOLE
     Indication: Aspergillus infection
     Dosage: 8 MG/KG/DAY, EVERY DAY
     Route: 042
     Dates: start: 201409, end: 201409
  15. VORICONAZOLE [Suspect]
     Active Substance: VORICONAZOLE
     Dosage: 8 MG/KG/DAY, EVERY DAY
     Route: 042
     Dates: start: 201409, end: 201409
  16. VORICONAZOLE [Suspect]
     Active Substance: VORICONAZOLE
     Dosage: 12 MILLIGRAM/KILOGRAM, QD (6 MG/KG/DAY, BID, LOADING DOSE, 12MG/KG EVERY DAY)
     Route: 042
     Dates: start: 201409, end: 201409
  17. POSACONAZOLE [Suspect]
     Active Substance: POSACONAZOLE
     Indication: Antifungal prophylaxis
     Dosage: 200 MILLIGRAM, TID (600 MILLIGRAM, QD)
     Route: 048
     Dates: start: 201405
  18. POSACONAZOLE [Suspect]
     Active Substance: POSACONAZOLE
     Dosage: 600 MG EVERY DAY
     Route: 048
     Dates: start: 201405
  19. POSACONAZOLE [Suspect]
     Active Substance: POSACONAZOLE
     Dosage: 600 MG EVERY DAY (ORAL SUSPENSION (200 MG PER OS P.O. THREE TIMES A DAY T.I.D.)
     Route: 048
  20. POSACONAZOLE [Suspect]
     Active Substance: POSACONAZOLE
     Dosage: 600 MG EVERY DAY
     Route: 065
     Dates: start: 201405
  21. VORICONAZOLE [Suspect]
     Active Substance: VORICONAZOLE
     Indication: Aspergillus infection
     Dosage: 6 MG/KG/DAY, BID, LOADING DOSE, 12MG/KG EVERY DAY
     Route: 042
     Dates: start: 201409, end: 201409
  22. VORICONAZOLE [Suspect]
     Active Substance: VORICONAZOLE
     Indication: Antifungal treatment
     Dosage: 8 MG/KG/DAY, EVERY DAY
     Route: 042
     Dates: start: 201409, end: 201409
  23. CASPOFUNGIN ACETATE [Suspect]
     Active Substance: CASPOFUNGIN ACETATE
     Indication: Product used for unknown indication
     Dosage: 70 MG, QD (LOADING DOSE)
     Route: 065
     Dates: start: 201409, end: 201409
  24. CASPOFUNGIN ACETATE [Suspect]
     Active Substance: CASPOFUNGIN ACETATE
     Indication: Antifungal treatment
     Dosage: 200 MG EVERYDAY
     Route: 065
     Dates: start: 201409
  25. AMPHOTERICIN B [Suspect]
     Active Substance: AMPHOTERICIN B
     Indication: Antifungal treatment
     Dosage: 3 MG/KG/DAY SINCE DAY -6
     Route: 042
     Dates: start: 201409, end: 201409
  26. AMPHOTERICIN B [Suspect]
     Active Substance: AMPHOTERICIN B
     Indication: Aspergillus infection
     Dosage: UNK
     Route: 065
  27. AMPHOTERICIN B [Suspect]
     Active Substance: AMPHOTERICIN B
     Indication: Aspergillus infection
     Route: 065
  28. DACOGEN [Suspect]
     Active Substance: DECITABINE
     Indication: Acute myeloid leukaemia
     Dosage: 20 MILLIGRAM/SQ. METER, QD(DAYS 1 TO 5)
     Route: 042
     Dates: start: 2014
  29. DACOGEN [Suspect]
     Active Substance: DECITABINE
     Dosage: 20 MG/M2/DAY I.V. DAYS 1 TO 5)
     Route: 042
  30. ETOPOSIDE [Suspect]
     Active Substance: ETOPOSIDE
     Indication: Acute myeloid leukaemia
     Dosage: 100 MG/M2, QD, DAY 3 TO 7
     Route: 042
     Dates: start: 201405
  31. ETOPOSIDE [Suspect]
     Active Substance: ETOPOSIDE
     Dosage: 100 MG/M2, QD, DAY 3 TO 7
     Route: 042
  32. IDARUBICIN [Suspect]
     Active Substance: IDARUBICIN
     Indication: Acute myeloid leukaemia
     Dosage: 12 MILLIGRAM/SQ. METER, QD (DAYS 2, 4 AND 6)
     Route: 065
  33. IDARUBICIN HYDROCHLORIDE [Concomitant]
     Active Substance: IDARUBICIN HYDROCHLORIDE
     Indication: Acute myeloid leukaemia
     Dosage: 12 MG/M2/DAY, DAYS 2, 4 AND 6
     Route: 042
     Dates: start: 201405
  34. MELPHALAN [Concomitant]
     Active Substance: MELPHALAN
     Indication: Acute myeloid leukaemia
     Dosage: 150 MG/M2, ON DAY -2
     Route: 042
     Dates: start: 201409
  35. MELPHALAN [Concomitant]
     Active Substance: MELPHALAN
     Indication: Bone marrow conditioning regimen
  36. THYMOCYTE IMMUNE GLOBULIN NOS [Concomitant]
     Active Substance: THYMOCYTE IMMUNE GLOBULIN NOS
     Indication: Bone marrow conditioning regimen
     Dosage: 10 MG/KG/DAY, DAYS -5 TO -2
     Route: 042
     Dates: start: 201409
  37. CYTARABINE [Concomitant]
     Active Substance: CYTARABINE
     Dosage: 2000 MG/M2/DAY B.I.D., DAYS 1 AND 5
     Route: 042
     Dates: start: 201408
  38. MITOXANTRONE HYDROCHLORIDE [Concomitant]
     Active Substance: MITOXANTRONE HYDROCHLORIDE
     Indication: Acute myeloid leukaemia
     Dosage: 30 MG/M2/DAY, DAYS 1 AND 5
     Route: 042
     Dates: start: 201408
  39. DECITABINE [Concomitant]
     Active Substance: DECITABINE
     Indication: Acute myeloid leukaemia
     Dosage: 20 MG/M2/DAY, DAYS 1 TO 5
     Route: 042
     Dates: start: 2014
  40. FLUDARABINE PHOSPHATE [Concomitant]
     Active Substance: FLUDARABINE PHOSPHATE
     Indication: Bone marrow conditioning regimen
     Dosage: 30 MG/M2/DAY, DAYS -6 TO -2;
     Route: 065
     Dates: start: 201409
  41. ETOPOSIDE [Concomitant]
     Active Substance: ETOPOSIDE
     Indication: Acute myeloid leukaemia
     Dosage: 100 MG/M2/DAY, DAYS 3 TO 7
     Route: 065
     Dates: start: 201405
  42. CYTARABINE [Concomitant]
     Active Substance: CYTARABINE
     Indication: Acute myeloid leukaemia
     Dosage: 100 MG/M2/DAY, DAYS 1 TO 7
     Route: 042
     Dates: start: 201405

REACTIONS (11)
  - Aspergillus infection [Fatal]
  - Bronchopulmonary aspergillosis [Fatal]
  - Cerebral aspergillosis [Fatal]
  - Drug ineffective [Fatal]
  - Septic shock [Unknown]
  - Multiple organ dysfunction syndrome [Unknown]
  - Abscess fungal [Unknown]
  - Febrile neutropenia [Unknown]
  - C-reactive protein increased [Unknown]
  - Drug resistance [Unknown]
  - Off label use [Unknown]

NARRATIVE: CASE EVENT DATE: 20140801
